FAERS Safety Report 4936672-2 (Version None)
Quarter: 2006Q1

REPORT INFORMATION
  Report Type: 
  Country: None (occurrence: None)
  Receive Date: 20060302
  Receipt Date: 20060221
  Transmission Date: 20060701
  Serious: Yes (Life-Threatening, Hospitalization)
  Sender: FDA-Public Use
  Company Number: 2006-02-1405

PATIENT
  Age: 59 Year
  Sex: Male

DRUGS (9)
  1. TEMOZOLOMIDE CAPSULES [Suspect]
     Indication: ANAPLASTIC ASTROCYTOMA
     Dosage: ORAL
     Route: 048
     Dates: start: 20040101, end: 20050426
  2. TEMOZOLOMIDE CAPSULES [Suspect]
     Indication: ANAPLASTIC ASTROCYTOMA
     Dosage: ORAL
     Route: 048
     Dates: start: 20050422, end: 20050426
  3. TEMOZOLOMIDE CAPSULES [Suspect]
     Indication: ANAPLASTIC ASTROCYTOMA
     Dosage: ORAL
     Route: 048
     Dates: start: 20040101
  4. RADIATION THERAPY  NO DOSE FORM [Suspect]
     Indication: ANAPLASTIC ASTROCYTOMA
     Dosage: X-RAY THERAPY
     Dates: start: 20040101, end: 20050215
  5. RADIATION THERAPY  NO DOSE FORM [Suspect]
     Indication: ANAPLASTIC ASTROCYTOMA
     Dosage: X-RAY THERAPY
     Dates: start: 20050201, end: 20050215
  6. RADIATION THERAPY  NO DOSE FORM [Suspect]
     Indication: ANAPLASTIC ASTROCYTOMA
     Dosage: X-RAY THERAPY
     Dates: start: 20040101
  7. PHENYTOIN [Concomitant]
  8. RAMIPRIL [Concomitant]
  9. ATORVASTATIN CALCIUM [Concomitant]

REACTIONS (3)
  - HAEMORRHAGE SUBCUTANEOUS [None]
  - IDIOPATHIC THROMBOCYTOPENIC PURPURA [None]
  - THERAPY NON-RESPONDER [None]
